FAERS Safety Report 23903314 (Version 1)
Quarter: 2024Q2

REPORT INFORMATION
  Report Type: Spontaneous
  Country: US (occurrence: US)
  Receive Date: 20240527
  Receipt Date: 20240527
  Transmission Date: 20240715
  Serious: No
  Sender: FDA-Public Use
  Company Number: US-Accord-415754

PATIENT
  Sex: Female

DRUGS (7)
  1. METHOTREXATE [Suspect]
     Active Substance: METHOTREXATE
     Indication: Product used for unknown indication
  2. RITUXAN [Concomitant]
     Active Substance: RITUXIMAB
  3. HYDROCODONE [Concomitant]
     Active Substance: HYDROCODONE
  4. MEPERIDINE [Concomitant]
     Active Substance: MEPERIDINE
  5. AMOXICILLIN [Concomitant]
     Active Substance: AMOXICILLIN
  6. ETANERCEPT [Concomitant]
     Active Substance: ETANERCEPT
  7. HYDROXYCHLOROQUINE [Concomitant]
     Active Substance: HYDROXYCHLOROQUINE

REACTIONS (2)
  - Nausea [Unknown]
  - Vomiting [Unknown]
